FAERS Safety Report 19648914 (Version 1)
Quarter: 2021Q3

REPORT INFORMATION
  Report Type: Spontaneous
  Country: US (occurrence: US)
  Receive Date: 20210803
  Receipt Date: 20210803
  Transmission Date: 20211014
  Serious: Yes (Other)
  Sender: FDA-Public Use
  Company Number: US-BEH-2021134296

PATIENT
  Sex: Female

DRUGS (1)
  1. PRIVIGEN [Suspect]
     Active Substance: HUMAN IMMUNOGLOBULIN G
     Indication: MYASTHENIA GRAVIS
     Dosage: 80 GRAM, QOW
     Route: 042
     Dates: start: 20170727

REACTIONS (5)
  - Cardiac disorder [Unknown]
  - Off label use [Unknown]
  - No adverse event [Unknown]
  - Illness [Unknown]
  - Insurance issue [Unknown]
